FAERS Safety Report 19226946 (Version 3)
Quarter: 2021Q4

REPORT INFORMATION
  Report Type: Report from Study
  Country: CO (occurrence: CO)
  Receive Date: 20210506
  Receipt Date: 20211021
  Transmission Date: 20220303
  Serious: Yes (Other)
  Sender: FDA-Public Use
  Company Number: CO-JNJFOC-20210458753

PATIENT
  Age: 39 Year
  Sex: Female
  Weight: 68 kg

DRUGS (10)
  1. SIMPONI [Suspect]
     Active Substance: GOLIMUMAB
     Indication: Ankylosing spondylitis
     Dosage: LAST APPLICATION 19-APR-2021, 19-JUL-2021, 21-SEP-2021
     Route: 058
     Dates: start: 20140106
  2. SIMPONI [Suspect]
     Active Substance: GOLIMUMAB
     Route: 058
     Dates: start: 20200811
  3. OXYCODONE [Concomitant]
     Active Substance: OXYCODONE
  4. METHADONE [Concomitant]
     Active Substance: METHADONE HYDROCHLORIDE
  5. TRAZODONE [Concomitant]
     Active Substance: TRAZODONE HYDROCHLORIDE
  6. FOLIC ACID [Concomitant]
     Active Substance: FOLIC ACID
  7. METHOTREXATE [Concomitant]
     Active Substance: METHOTREXATE
  8. LEVOTHYROXINE [Concomitant]
     Active Substance: LEVOTHYROXINE
  9. FERROUS SULFATE [Concomitant]
     Active Substance: FERROUS SULFATE
  10. OMEPRAZOLE [Concomitant]
     Active Substance: OMEPRAZOLE

REACTIONS (7)
  - Spinal operation [Recovering/Resolving]
  - Patient-device incompatibility [Recovering/Resolving]
  - Hysterectomy [Recovering/Resolving]
  - Influenza [Recovering/Resolving]
  - Procedural pain [Recovering/Resolving]
  - Headache [Recovering/Resolving]
  - Asthenia [Not Recovered/Not Resolved]

NARRATIVE: CASE EVENT DATE: 20210101
